FAERS Safety Report 8743608 (Version 2)
Quarter: 2012Q4

REPORT INFORMATION
  Report Type: 
  Country: US (occurrence: US)
  Receive Date: 20120824
  Receipt Date: 20120920
  Transmission Date: 20130627
  Serious: Yes (Other)
  Sender: FDA-Public Use
  Company Number: US-B.I. PHARMACEUTICALS,INC./RIDGEFIELD-2012-BP-19996BP

PATIENT
  Age: 22 Year
  Sex: Male
  Weight: 89.81 kg

DRUGS (10)
  1. FLOMAX CAPSULES [Suspect]
     Indication: DYSURIA
     Route: 048
     Dates: start: 20120716, end: 20120730
  2. FLOMAX CAPSULES [Suspect]
     Indication: MICTURITION URGENCY
  3. FLOMAX CAPSULES [Suspect]
     Indication: POLLAKIURIA
  4. TOPAMAX [Concomitant]
     Dosage: 500 mg
  5. REQUIP [Concomitant]
  6. TESTRON [Concomitant]
  7. LEVOXYL [Concomitant]
  8. IMITREX [Concomitant]
  9. VIT D [Concomitant]
  10. MAGNESIUM [Concomitant]

REACTIONS (1)
  - Convulsion [Recovered/Resolved]
